FAERS Safety Report 8041520-0 (Version None)
Quarter: 2012Q1

REPORT INFORMATION
  Report Type: 
  Country: None (occurrence: None)
  Receive Date: 20120112
  Receipt Date: 20120104
  Transmission Date: 20120608
  Serious: Yes (Hospitalization, Other)
  Sender: FDA-Public Use
  Company Number: US-JNJFOC-20111205241

PATIENT
  Sex: Female
  Weight: 41.28 kg

DRUGS (10)
  1. ZOFRAN [Concomitant]
  2. ANTIBIOTICS [Concomitant]
     Indication: IRRITABLE BOWEL SYNDROME
  3. INDOMETHACIN [Concomitant]
  4. BENADRYL [Concomitant]
  5. ACETAMINOPHEN [Concomitant]
  6. PRILOSEC [Concomitant]
  7. PREDNISONE TAB [Concomitant]
  8. NORETHINDRONE [Concomitant]
  9. REMICADE [Suspect]
     Indication: IRRITABLE BOWEL SYNDROME
     Route: 042
     Dates: start: 20110720, end: 20110830
  10. ATIVAN [Concomitant]

REACTIONS (1)
  - GASTROENTERITIS VIRAL [None]
